FAERS Safety Report 6346716-1 (Version None)
Quarter: 2009Q3

REPORT INFORMATION
  Report Type: 
  Country: None (occurrence: None)
  Receive Date: 20090904
  Receipt Date: 20090818
  Transmission Date: 20100115
  Serious: Yes (Death)
  Sender: FDA-Public Use
  Company Number: 2009EU003389

PATIENT

DRUGS (3)
  1. TACROLIMUS [Suspect]
     Indication: RENAL TRANSPLANT
  2. MYCOPHENOLATE MOFETIL [Suspect]
     Indication: RENAL TRANSPLANT
  3. BASILIXIMAB(BASILIXIMAB) [Suspect]
     Indication: RENAL TRANSPLANT

REACTIONS (1)
  - VARICELLA [None]
